FAERS Safety Report 9373404 (Version 1)
Quarter: 2013Q2

REPORT INFORMATION
  Report Type: Spontaneous
  Country: FR (occurrence: FR)
  Receive Date: 20130627
  Receipt Date: 20130627
  Transmission Date: 20140414
  Serious: Yes (Death, Hospitalization)
  Sender: FDA-Public Use
  Company Number: FR-TEVA-415693ISR

PATIENT
  Age: 83 Year
  Sex: Male

DRUGS (3)
  1. FUROSEMIDE TEVA 40 MG [Suspect]
     Dosage: DURATION MORE THAN ONE YEAR
     Route: 048
  2. UNSPECIFIED BETABLOCKERS [Concomitant]
  3. UNSPECIFIED ANTICOAGULANTS [Concomitant]

REACTIONS (4)
  - Cerebral haemorrhage [Fatal]
  - Cardiac failure [Fatal]
  - Decreased appetite [Unknown]
  - Somnolence [Unknown]
